FAERS Safety Report 6683160-1 (Version None)
Quarter: 2010Q2

REPORT INFORMATION
  Report Type: 
  Country: None (occurrence: None)
  Receive Date: 20100415
  Receipt Date: 20100401
  Transmission Date: 20101027
  Serious: Yes (Hospitalization)
  Sender: FDA-Public Use
  Company Number: DE-CEPHALON-2010002061

PATIENT
  Age: 63 Year
  Sex: Female
  Weight: 72 kg

DRUGS (2)
  1. TREANDA [Suspect]
     Dates: start: 20100210, end: 20100310
  2. RITUXIMAB [Suspect]
     Dates: start: 20100209, end: 20100309

REACTIONS (1)
  - GASTRITIS EROSIVE [None]
